FAERS Safety Report 5477248-0 (Version None)
Quarter: 2007Q4

REPORT INFORMATION
  Report Type: 
  Country: None (occurrence: None)
  Receive Date: 20071004
  Receipt Date: 20070921
  Transmission Date: 20080405
  Serious: Yes (Death)
  Sender: FDA-Public Use
  Company Number: US-ELI_LILLY_AND_COMPANY-US200709001830

PATIENT
  Sex: Female
  Weight: 72.562 kg

DRUGS (21)
  1. FORTEO [Suspect]
     Indication: OSTEOPOROSIS
     Dates: start: 20070712, end: 20070830
  2. PERCOCET [Concomitant]
     Indication: PAIN
  3. COUMADIN [Concomitant]
     Indication: COAGULOPATHY
     Dosage: 4 MG, DAILY (1/D)
  4. COUMADIN [Concomitant]
     Dosage: 2 MG, DAILY (1/D)
     Dates: start: 20070101
  5. ASPIRIN [Concomitant]
  6. FUROSEMIDE [Concomitant]
     Dosage: 40 MG, DAILY (1/D)
     Route: 048
  7. SPIRONOLACTONE [Concomitant]
     Dosage: 50 MG, DAILY (1/D)
     Route: 048
  8. TOPROL-XL [Concomitant]
     Dosage: 50 MG, DAILY (1/D)
     Route: 048
  9. ASMANEX TWISTHALER [Concomitant]
     Dosage: 220 UG, 2/D
     Route: 055
  10. GABAPENTIN [Concomitant]
     Indication: NEURALGIA
     Dosage: 300 MG, AS NEEDED
  11. QUININE SULFATE [Concomitant]
     Indication: MUSCLE SPASMS
     Dosage: 325 MG, AS NEEDED
  12. LORAZEPAM [Concomitant]
     Indication: MUSCLE SPASMS
     Dosage: 0.5 MG, AS NEEDED
  13. PRILOSEC [Concomitant]
     Dosage: 20 MG, DAILY (1/D)
     Route: 048
  14. ASPIRIN [Concomitant]
     Dosage: 81 MG, DAILY (1/D)
     Route: 048
  15. FENTANYL [Concomitant]
     Dosage: 50 UG, UNK
     Route: 061
  16. PROVENTIL                               /USA/ [Concomitant]
     Dosage: UNK, AS NEEDED
  17. OXYGEN [Concomitant]
  18. BUSPAR [Concomitant]
  19. CENTRUM [Concomitant]
  20. VITAMIN E /001105/ [Concomitant]
     Dosage: 400 U, DAILY (1/D)
     Route: 048
  21. VIACTIV                                 /CAN/ [Concomitant]

REACTIONS (9)
  - ABDOMINAL PAIN UPPER [None]
  - APPETITE DISORDER [None]
  - LABORATORY TEST ABNORMAL [None]
  - MALAISE [None]
  - MYOCARDIAL INFARCTION [None]
  - NAUSEA [None]
  - SUDDEN DEATH [None]
  - VOMITING [None]
  - WEIGHT DECREASED [None]
